FAERS Safety Report 6509164-7 (Version None)
Quarter: 2009Q4

REPORT INFORMATION
  Report Type: 
  Country: None (occurrence: None)
  Receive Date: 20091221
  Receipt Date: 20091215
  Transmission Date: 20100525
  Serious: Yes (Hospitalization)
  Sender: FDA-Public Use
  Company Number: US-ABBOTT-09P-163-0614325-00

PATIENT
  Age: 57 Year
  Sex: Female
  Weight: 56.841 kg

DRUGS (2)
  1. DEPAKOTE [Suspect]
     Indication: RENAL CELL CARCINOMA
     Dates: start: 20090604
  2. SUNITINIB AMALTATE ;SORAFENIB ; PLACEBO [Suspect]
     Indication: RENAL CELL CARCINOMA
     Dates: start: 20090604

REACTIONS (3)
  - COLITIS [None]
  - DIARRHOEA [None]
  - GASTRITIS [None]
